FAERS Safety Report 9737164 (Version 1)
Quarter: 2013Q4

REPORT INFORMATION
  Report Type: Spontaneous
  Country: GB (occurrence: GB)
  Receive Date: 20131206
  Receipt Date: 20131206
  Transmission Date: 20140711
  Serious: Yes (Hospitalization)
  Sender: FDA-Public Use
  Company Number: PHHY2013GB141552

PATIENT
  Age: 55 Year
  Sex: Female

DRUGS (2)
  1. TRIAMCINOLONE [Suspect]
     Indication: POST HERPETIC NEURALGIA
     Dosage: 80 MG, UNK
     Dates: start: 2009
  2. ATAZANAVIR W/RITONAVIR [Interacting]
     Indication: HERPES ZOSTER

REACTIONS (7)
  - Cushing^s syndrome [Unknown]
  - Hyperglycaemia [Unknown]
  - Hyperosmolar state [Unknown]
  - Swelling face [Unknown]
  - Hirsutism [Unknown]
  - Fat tissue increased [Unknown]
  - Drug interaction [Unknown]
